FAERS Safety Report 16094650 (Version 1)
Quarter: 2019Q1

REPORT INFORMATION
  Report Type: Spontaneous
  Country: US (occurrence: US)
  Receive Date: 20190216
  Receipt Date: 20190216
  Transmission Date: 20190418
  Serious: Yes (Death, Hospitalization)
  Sender: FDA-Public Use
  Company Number: None

PATIENT
  Age: 75 Year
  Sex: Female
  Weight: 81.38 kg

DRUGS (2)
  1. CARBOPLATIN. [Suspect]
     Active Substance: CARBOPLATIN
     Dates: start: 20190122
  2. TAXOL [Suspect]
     Active Substance: PACLITAXEL
     Dates: end: 20190122

REACTIONS (5)
  - Troponin I increased [None]
  - Encephalopathy [None]
  - Coma [None]
  - Embolic stroke [None]
  - Thrombocytopenia [None]

NARRATIVE: CASE EVENT DATE: 20190127
